FAERS Safety Report 7096648-9 (Version None)
Quarter: 2010Q4

REPORT INFORMATION
  Report Type: 
  Country: None (occurrence: None)
  Receive Date: 20101110
  Receipt Date: 20101110
  Transmission Date: 20110411
  Serious: Yes (Hospitalization, Disabling)
  Sender: FDA-Public Use
  Company Number: None

PATIENT
  Age: 82 Year
  Sex: Female
  Weight: 57.1532 kg

DRUGS (1)
  1. FOSAMAX PLUS D [Suspect]
     Indication: OSTEOPOROSIS
     Dosage: ONE 70 MG/5600 IU TABLET ONCE PER WEEK PO
     Route: 048
     Dates: start: 20051101, end: 20100926

REACTIONS (2)
  - ARTHRITIS [None]
  - FEMUR FRACTURE [None]
